FAERS Safety Report 4559826-6 (Version None)
Quarter: 2005Q1

REPORT INFORMATION
  Report Type: 
  Country: None (occurrence: None)
  Receive Date: 20050124
  Receipt Date: 20030923
  Transmission Date: 20050727
  Serious: Yes (Hospitalization)
  Sender: FDA-Public Use
  Company Number: US-MERCK-0309USA02506

PATIENT
  Age: 75 Year
  Sex: Male
  Weight: 90 kg

DRUGS (11)
  1. VIOXX [Suspect]
     Indication: OSTEOARTHRITIS
     Route: 048
     Dates: start: 20010827, end: 20010910
  2. VIOXX [Suspect]
     Indication: ARTHRALGIA
     Route: 048
     Dates: start: 20010827, end: 20010910
  3. VASOTEC [Concomitant]
     Indication: HYPERTENSION
     Route: 048
     Dates: start: 20010801
  4. VASOTEC [Concomitant]
     Route: 048
     Dates: start: 19931101, end: 20010801
  5. LIPITOR [Concomitant]
     Indication: BLOOD CHOLESTEROL INCREASED
     Route: 065
     Dates: start: 19980201, end: 20010901
  6. ECOTRIN [Concomitant]
     Indication: PROPHYLAXIS
     Route: 048
     Dates: start: 19911101
  7. HYDROCHLOROTHIAZIDE [Concomitant]
     Route: 065
  8. PREVACID [Concomitant]
     Route: 065
  9. RELAFEN [Concomitant]
     Route: 065
     Dates: start: 19940101, end: 19970101
  10. ZIAC [Concomitant]
     Route: 065
     Dates: start: 20010827
  11. ZEBETA [Concomitant]
     Route: 065
     Dates: start: 20010801, end: 20010901

REACTIONS (29)
  - ABDOMINAL ABSCESS [None]
  - CROHN'S DISEASE [None]
  - CYST [None]
  - DIARRHOEA [None]
  - DIVERTICULUM DUODENAL [None]
  - DYSPEPSIA [None]
  - EMOTIONAL DISTRESS [None]
  - GASTROOESOPHAGEAL REFLUX DISEASE [None]
  - HIATUS HERNIA [None]
  - ILEAL ULCER [None]
  - ILEITIS [None]
  - INTERVERTEBRAL DISC DEGENERATION [None]
  - LARGE INTESTINAL OBSTRUCTION [None]
  - LARGE INTESTINAL ULCER [None]
  - LARGE INTESTINE PERFORATION [None]
  - METABOLIC ACIDOSIS [None]
  - MULTI-ORGAN FAILURE [None]
  - NECROTISING COLITIS [None]
  - OSTEOARTHRITIS [None]
  - PLEURAL EFFUSION [None]
  - RENAL CORTICAL NECROSIS [None]
  - RENAL CYST [None]
  - RENAL FAILURE ACUTE [None]
  - RENAL TUBULAR NECROSIS [None]
  - RESPIRATORY FAILURE [None]
  - SEPTIC SHOCK [None]
  - SMALL INTESTINE ULCER [None]
  - VASOSPASM [None]
  - WOUND INFECTION [None]
